FAERS Safety Report 5096905-1 (Version None)
Quarter: 2006Q3

REPORT INFORMATION
  Report Type: 
  Country: None (occurrence: None)
  Receive Date: 20060906
  Receipt Date: 20060605
  Transmission Date: 20061208
  Serious: Yes (Hospitalization, Other)
  Sender: FDA-Public Use
  Company Number: PHEH2006US07334

PATIENT
  Age: 42 Year
  Sex: Female

DRUGS (4)
  1. ZOMETA [Suspect]
     Indication: METASTASES TO BONE
     Dosage: 4 MG Q4 WEEKS
     Dates: start: 20060317, end: 20060317
  2. GEMCITABINE HYDROCHLORIDE [Concomitant]
     Indication: BREAST CANCER
     Dosage: 1000 MG/M2 WEEKLY
     Dates: start: 20051024, end: 20060324
  3. AREDIA [Suspect]
     Indication: BREAST CANCER
     Dosage: UNK, QMO
     Dates: start: 20040101, end: 20060301
  4. CHEMOTHERAPEUTICS,OTHER [Concomitant]

REACTIONS (14)
  - ANHEDONIA [None]
  - ANXIETY [None]
  - DECREASED INTEREST [None]
  - GENERAL PHYSICAL HEALTH DETERIORATION [None]
  - IMPAIRED HEALING [None]
  - OEDEMA PERIPHERAL [None]
  - OSTEONECROSIS [None]
  - PAIN [None]
  - PAIN IN JAW [None]
  - PYREXIA [None]
  - STREPTOCOCCAL BACTERAEMIA [None]
  - STREPTOCOCCAL INFECTION [None]
  - TOOTH EXTRACTION [None]
  - WOUND DEBRIDEMENT [None]
